FAERS Safety Report 13194206 (Version 2)
Quarter: 2017Q1

REPORT INFORMATION
  Report Type: Spontaneous
  Country: CZ (occurrence: CZ)
  Receive Date: 20170207
  Receipt Date: 20170324
  Transmission Date: 20170428
  Serious: No
  Sender: FDA-Public Use
  Company Number: CZ-ALLERGAN-1704212US

PATIENT
  Age: 26 Year
  Sex: Female

DRUGS (1)
  1. LEVONORGESTREL - BP [Suspect]
     Active Substance: LEVONORGESTREL
     Indication: CONTRACEPTION
     Dosage: 52 MG, THE INITIAL RELEASE RATE IS 20 MCG PER 24 HOURS
     Route: 015
     Dates: start: 20160718, end: 20170118

REACTIONS (5)
  - Abdominal pain lower [Not Recovered/Not Resolved]
  - Headache [Unknown]
  - Skin disorder [Not Recovered/Not Resolved]
  - Weight increased [Not Recovered/Not Resolved]
  - Metrorrhagia [Recovered/Resolved]

NARRATIVE: CASE EVENT DATE: 201608
